FAERS Safety Report 8287873-X (Version None)
Quarter: 2012Q2

REPORT INFORMATION
  Report Type: 
  Country: None (occurrence: None)
  Receive Date: 20120416
  Receipt Date: 20120403
  Transmission Date: 20120825
  Serious: Yes (Hospitalization)
  Sender: FDA-Public Use
  Company Number: US-ELI_LILLY_AND_COMPANY-US201204002038

PATIENT

DRUGS (2)
  1. OLANZAPINE [Suspect]
     Indication: SCHIZOPHRENIA
     Dosage: UNK
     Dates: start: 20120402
  2. ZYPREXA INTRAMUSCULAR [Concomitant]
     Dosage: 10 MG, UNKNOWN
     Route: 030

REACTIONS (5)
  - DYSARTHRIA [None]
  - FEELING ABNORMAL [None]
  - DEPRESSED LEVEL OF CONSCIOUSNESS [None]
  - HYPERTENSION [None]
  - SEDATION [None]
